FAERS Safety Report 22398600 (Version 1)
Quarter: 2023Q2

REPORT INFORMATION
  Report Type: Spontaneous
  Country: US (occurrence: US)
  Receive Date: 20230602
  Receipt Date: 20230602
  Transmission Date: 20230721
  Serious: No
  Sender: FDA-Public Use
  Company Number: US-SA-SAC20230601000289

PATIENT
  Age: 1 Year
  Sex: Male
  Weight: 10.8 kg

DRUGS (5)
  1. DUPIXENT [Suspect]
     Active Substance: DUPILUMAB
     Indication: Dermatitis allergic
     Dosage: 200 MG, QM
     Route: 058
     Dates: start: 20230517
  2. ZINC [Concomitant]
     Active Substance: ZINC
  3. TACROLIMUS [Concomitant]
     Active Substance: TACROLIMUS
  4. VITAMINS [Concomitant]
     Active Substance: VITAMINS
  5. FISH OIL [Concomitant]
     Active Substance: FISH OIL

REACTIONS (1)
  - Middle insomnia [Recovering/Resolving]

NARRATIVE: CASE EVENT DATE: 20230501
